FAERS Safety Report 7308128-3 (Version None)
Quarter: 2011Q1

REPORT INFORMATION
  Report Type: 
  Country: None (occurrence: None)
  Receive Date: 20110223
  Receipt Date: 20110210
  Transmission Date: 20110831
  Serious: Yes (Hospitalization, Other)
  Sender: FDA-Public Use
  Company Number: US-ROCHE-735392

PATIENT
  Sex: Female
  Weight: 77.1 kg

DRUGS (2)
  1. ACCUTANE [Suspect]
     Route: 065
     Dates: start: 19850301, end: 19850901
  2. ACCUTANE [Suspect]
     Indication: ACNE
     Route: 065
     Dates: start: 19820301, end: 19820801

REACTIONS (10)
  - DEPRESSION [None]
  - ANAL ABSCESS [None]
  - COLONIC POLYP [None]
  - GASTROINTESTINAL INJURY [None]
  - CROHN'S DISEASE [None]
  - COLITIS [None]
  - IRRITABLE BOWEL SYNDROME [None]
  - HAEMORRHOIDS [None]
  - INFLAMMATORY BOWEL DISEASE [None]
  - ARTHRITIS [None]
